FAERS Safety Report 12165419 (Version 1)
Quarter: 2016Q1

REPORT INFORMATION
  Report Type: Report from Study
  Country: US (occurrence: US)
  Receive Date: 20160309
  Receipt Date: 20160309
  Transmission Date: 20160526
  Serious: Yes (Disabling)
  Sender: FDA-Public Use
  Company Number: US-MALLINCKRODT-T201600673

PATIENT
  Sex: Male

DRUGS (1)
  1. REPOSITORY CORTICOTROPIN INJECTION [Suspect]
     Active Substance: CORTICOTROPIN
     Indication: PRODUCT USED FOR UNKNOWN INDICATION
     Dosage: UNK DOSE AND FREQUENCY
     Route: 058
     Dates: start: 20150831, end: 20151115

REACTIONS (2)
  - Abasia [Unknown]
  - Asthenia [Unknown]
